FAERS Safety Report 9416948 (Version 1)
Quarter: 2013Q3

REPORT INFORMATION
  Report Type: Spontaneous
  Country: VE (occurrence: VE)
  Receive Date: 20130724
  Receipt Date: 20130724
  Transmission Date: 20140515
  Serious: Yes (Hospitalization, Other)
  Sender: FDA-Public Use
  Company Number: VE-JNJFOC-20130706301

PATIENT
  Age: 73 Year
  Sex: Female
  Weight: 68.93 kg

DRUGS (3)
  1. XARELTO [Suspect]
     Indication: CEREBROVASCULAR ACCIDENT PROPHYLAXIS
     Route: 048
     Dates: start: 20130623, end: 20130624
  2. XARELTO [Suspect]
     Indication: ATRIAL FIBRILLATION
     Route: 048
     Dates: start: 20130623, end: 20130624
  3. AMIODARONE [Concomitant]
     Route: 065
     Dates: start: 20130622, end: 20130623

REACTIONS (5)
  - Drug eruption [Not Recovered/Not Resolved]
  - Haematuria [Unknown]
  - Palmar-plantar erythrodysaesthesia syndrome [Unknown]
  - Pancytopenia [Unknown]
  - Pain [Unknown]
